FAERS Safety Report 5003889-0 (Version None)
Quarter: 2006Q2

REPORT INFORMATION
  Report Type: 
  Country: None (occurrence: None)
  Receive Date: 20060515
  Receipt Date: 20060503
  Transmission Date: 20061013
  Serious: Yes (Other)
  Sender: FDA-Public Use
  Company Number: GXKR2006BR02496

PATIENT
  Sex: Female

DRUGS (1)
  1. CO-TRIMOXAZOLE (NGX) (SULFAMETHOXAZOLE, TRIMETHOPRIM) 800/160MG [Suspect]
     Indication: UVEITIS
     Dosage: 960 MG, BID, ORAL
     Route: 048

REACTIONS (2)
  - CONDITION AGGRAVATED [None]
  - DRUG INEFFECTIVE [None]
